FAERS Safety Report 17782426 (Version 1)
Quarter: 2020Q2

REPORT INFORMATION
  Report Type: Report from Study
  Country: NL (occurrence: NL)
  Receive Date: 20200514
  Receipt Date: 20200514
  Transmission Date: 20200714
  Serious: Yes (Life-Threatening)
  Sender: FDA-Public Use
  Company Number: NL-ACCORD-180449

PATIENT
  Age: 72 Year
  Sex: Female

DRUGS (11)
  1. CALCI CHEW D3 [Concomitant]
     Active Substance: CALCIUM CARBONATE\CHOLECALCIFEROL
     Dosage: 1000/MG/IE, 1X/D
     Dates: start: 20090703
  2. CELECOXIB. [Suspect]
     Active Substance: CELECOXIB
     Indication: PSORIATIC ARTHROPATHY
     Dosage: 200MG, 2X/D
     Dates: start: 20081016, end: 20170523
  3. PREDNISOLONE. [Concomitant]
     Active Substance: PREDNISOLONE
     Dosage: 5MG, 1X/D
     Dates: start: 20151110
  4. OMEPRAZOLE. [Concomitant]
     Active Substance: OMEPRAZOLE
     Dosage: 20MG, 2X/D
     Dates: start: 20050101
  5. VALSARTAN. [Concomitant]
     Active Substance: VALSARTAN
     Dosage: 320MG, 1X/D
  6. CETIRIZINE [Concomitant]
     Active Substance: CETIRIZINE HYDROCHLORIDE
     Dosage: 10MG, 2X/D
  7. GOLIMUMAB [Concomitant]
     Active Substance: GOLIMUMAB
     Dosage: 50MG, 1X/3W
     Dates: start: 20151110
  8. METHOTREXATE. [Suspect]
     Active Substance: METHOTREXATE
     Indication: PSORIATIC ARTHROPATHY
     Dosage: 15MG, 1X/W
     Dates: start: 20170131, end: 20170523
  9. AMITRIPTYLINE [Concomitant]
     Active Substance: AMITRIPTYLINE
     Dosage: 10MG, 1X/D
     Dates: start: 20131008
  10. FOLIC ACID. [Concomitant]
     Active Substance: FOLIC ACID
     Dosage: 10MG, 1X/W
     Dates: start: 20170131, end: 20170523
  11. PARACETAMOL [Concomitant]
     Active Substance: ACETAMINOPHEN
     Dosage: 1000MG, 3X/D
     Dates: start: 20120913

REACTIONS (2)
  - Abdominal discomfort [Recovered/Resolved]
  - Blister [Recovered/Resolved]

NARRATIVE: CASE EVENT DATE: 20170523
